FAERS Safety Report 11348070 (Version 1)
Quarter: 2015Q3

REPORT INFORMATION
  Report Type: Spontaneous
  Country: US (occurrence: US)
  Receive Date: 20150803
  Receipt Date: 20150803
  Transmission Date: 20151125
  Serious: No
  Sender: FDA-Public Use
  Company Number: US-ELI_LILLY_AND_COMPANY-US201202001608

PATIENT
  Age: 34 Year
  Sex: Male

DRUGS (1)
  1. STRATTERA [Suspect]
     Active Substance: ATOMOXETINE HYDROCHLORIDE
     Indication: THINKING ABNORMAL

REACTIONS (3)
  - Drug screen positive [Unknown]
  - Intentional product misuse [Unknown]
  - Expired product administered [Unknown]
